FAERS Safety Report 9749975 (Version 1)
Quarter: 2013Q4

REPORT INFORMATION
  Report Type: Spontaneous
  Country: DE (occurrence: DE)
  Receive Date: 20131212
  Receipt Date: 20131212
  Transmission Date: 20140711
  Serious: Yes (Hospitalization)
  Sender: FDA-Public Use
  Company Number: DE-TEVA-450315GER

PATIENT
  Age: 60 Year
  Sex: Female

DRUGS (3)
  1. TRIAMTERENE [Suspect]
     Dosage: 1 DOSAGE FORM CONTAINS TRIAMTEREN 50MG AND HYDROCHLOROTHIAZIDE 25 MG
     Route: 048
  2. AMLODIPIN [Interacting]
  3. BISOPROLOL [Interacting]
     Dosage: 1 DOSAGE FORM CONTAINS BISOPROLOL AND HYDROCHLOROTHIAZIDE

REACTIONS (2)
  - Blood potassium decreased [Unknown]
  - Drug interaction [Unknown]
